FAERS Safety Report 10771150 (Version 2)
Quarter: 2015Q1

REPORT INFORMATION
  Report Type: Spontaneous
  Country: US (occurrence: US)
  Receive Date: 20150206
  Receipt Date: 20150210
  Transmission Date: 20150721
  Serious: Yes (Death, Hospitalization, Other)
  Sender: FDA-Public Use
  Company Number: US-PFIZER INC-2014108058

PATIENT
  Age: 70 Year
  Sex: Male

DRUGS (2)
  1. ELIQUIS [Suspect]
     Active Substance: APIXABAN
     Indication: CEREBROVASCULAR ACCIDENT PROPHYLAXIS
     Dosage: 5 MG, 2X/DAY
     Route: 048
     Dates: start: 20140313, end: 20140330
  2. HEPARIN SODIUM. [Suspect]
     Active Substance: HEPARIN SODIUM
     Indication: ATRIAL FIBRILLATION
     Dates: start: 20140331, end: 20140401

REACTIONS (5)
  - Sleep apnoea syndrome [Unknown]
  - Cardiac failure congestive [Unknown]
  - Renal failure [Unknown]
  - Coagulation test abnormal [Unknown]
  - Respiratory failure [Fatal]

NARRATIVE: CASE EVENT DATE: 2014
